FAERS Safety Report 17227492 (Version 2)
Quarter: 2020Q2

REPORT INFORMATION
  Report Type: Report from Study
  Country: BR (occurrence: BR)
  Receive Date: 20200103
  Receipt Date: 20200407
  Transmission Date: 20200713
  Serious: Yes (Hospitalization)
  Sender: FDA-Public Use
  Company Number: BR-ROCHE-2361641

PATIENT
  Age: 23 Year
  Sex: Male
  Weight: 72 kg

DRUGS (1)
  1. OCREVUS [Suspect]
     Active Substance: OCRELIZUMAB
     Indication: MULTIPLE SCLEROSIS
     Dosage: MOST RECENT DOSE: 22/JAN/2020
     Route: 065
     Dates: start: 20190603

REACTIONS (5)
  - Pharyngitis bacterial [Recovered/Resolved]
  - Tonsillitis [Recovered/Resolved]
  - Flushing [Recovered/Resolved]
  - Cough [Recovered/Resolved]
  - Pharyngitis [Recovered/Resolved]

NARRATIVE: CASE EVENT DATE: 20190718
